APPROVED DRUG PRODUCT: KALEXATE
Active Ingredient: SODIUM POLYSTYRENE SULFONATE
Strength: 454GM/BOT
Dosage Form/Route: POWDER;ORAL, RECTAL
Application: A040905 | Product #001 | TE Code: AA
Applicant: KVK TECH INC
Approved: Mar 30, 2009 | RLD: No | RS: Yes | Type: RX